FAERS Safety Report 8072931-5 (Version None)
Quarter: 2012Q1

REPORT INFORMATION
  Report Type: 
  Country: None (occurrence: None)
  Receive Date: 20120120
  Receipt Date: 20120105
  Transmission Date: 20120608
  Serious: Yes (Death)
  Sender: FDA-Public Use
  Company Number: EU-2011-10273

PATIENT
  Age: 88 Year
  Sex: Male

DRUGS (5)
  1. SAMSCA [Suspect]
     Indication: INAPPROPRIATE ANTIDIURETIC HORMONE SECRETION
     Dosage: 7.5 MG MILLIGRAM(S), QD, ORAL
     Route: 048
     Dates: start: 20111028, end: 20111101
  2. RAMIPRIL (RAMIPRIL) TABLET [Concomitant]
  3. ASPIRIN [Concomitant]
  4. SODIUM CHLORIDE 0.9% [Concomitant]
  5. BISOPROLOL FUMARATE [Concomitant]

REACTIONS (6)
  - RESPIRATORY FAILURE [None]
  - BRONCHOPNEUMONIA [None]
  - RENAL IMPAIRMENT [None]
  - CONDITION AGGRAVATED [None]
  - PNEUMONIA STAPHYLOCOCCAL [None]
  - WRONG TECHNIQUE IN DRUG USAGE PROCESS [None]
